FAERS Safety Report 23027010 (Version 3)
Quarter: 2023Q4

REPORT INFORMATION
  Report Type: Spontaneous
  Country: US (occurrence: US)
  Receive Date: 20231004
  Receipt Date: 20231103
  Transmission Date: 20240109
  Serious: Yes (Other)
  Sender: FDA-Public Use
  Company Number: US-Stemline Therapeutics, Inc.-2023ST002404

PATIENT
  Age: 59 Year
  Sex: Female

DRUGS (8)
  1. ORSERDU [Suspect]
     Active Substance: ELACESTRANT
     Indication: Product used for unknown indication
     Dosage: 345MG, ONCE A DAY
     Route: 048
     Dates: start: 20230706
  2. METOPROLOL TARTRATE [Concomitant]
     Active Substance: METOPROLOL TARTRATE
     Indication: Blood pressure measurement
     Dosage: UNKNOWN
     Route: 065
  3. METOPROLOL TARTRATE [Concomitant]
     Active Substance: METOPROLOL TARTRATE
     Dosage: 50MG ONE IN THE MORNING AND ONE AT NIGHT
     Route: 065
  4. VITAMINS [Concomitant]
     Active Substance: VITAMINS
     Indication: Product used for unknown indication
     Dosage: UNKNOWN
     Route: 065
  5. LEVOFLOXACIN [Concomitant]
     Active Substance: LEVOFLOXACIN
     Indication: Nasopharyngitis
     Dosage: UNKNOWN
     Route: 065
     Dates: end: 20230822
  6. DIETARY SUPPLEMENT [Concomitant]
     Active Substance: DIETARY SUPPLEMENT
     Indication: Blood iron decreased
     Dosage: 1 CAPSULE ONCE A DAY
     Route: 065
  7. CEFDINIR [Concomitant]
     Active Substance: CEFDINIR
     Indication: Pneumonia
     Dosage: 10 DAY COURSE
  8. UNSPECIFIED INGREDIENT [Concomitant]
     Active Substance: UNSPECIFIED INGREDIENT
     Indication: Product used for unknown indication

REACTIONS (21)
  - Pneumonia [Unknown]
  - Metastases to lung [Unknown]
  - Disease progression [Unknown]
  - Device leakage [Unknown]
  - Peripheral swelling [Recovering/Resolving]
  - Alopecia [Unknown]
  - Dehydration [Unknown]
  - Impaired driving ability [Unknown]
  - Lipoedema [Recovering/Resolving]
  - Weight increased [Unknown]
  - Nasopharyngitis [Recovering/Resolving]
  - Oropharyngeal discomfort [Recovering/Resolving]
  - Illness [Recovering/Resolving]
  - Weight decreased [Unknown]
  - Hypoglycaemia [Unknown]
  - White blood cell count decreased [Unknown]
  - Red blood cell count decreased [Unknown]
  - Asthenia [Unknown]
  - Anaemia [Unknown]
  - Fatigue [Unknown]
  - Dyspnoea [Unknown]
